FAERS Safety Report 18052987 (Version 2)
Quarter: 2020Q3

REPORT INFORMATION
  Report Type: Other
  Country: US (occurrence: US)
  Receive Date: 20200722
  Receipt Date: 20200810
  Transmission Date: 20201103
  Serious: Yes (Hospitalization)
  Sender: FDA-Public Use
  Company Number: US-ROCHE-2645342

PATIENT
  Sex: Male

DRUGS (6)
  1. XELODA [Suspect]
     Active Substance: CAPECITABINE
     Indication: RECTAL CANCER
     Dosage: TAKE 3 TABLET(S) WITH FOOD FOR 14 DAYS AS DIRECTED, THEN 7 DAYS OFF.
     Route: 048
  2. ROXICODONE [Concomitant]
     Active Substance: OXYCODONE HYDROCHLORIDE
     Indication: PAIN
     Dosage: TAKE 1?2 TABLET (5?10 MG BY MOUTH EVERY FOUR HOURS
     Route: 048
     Dates: start: 20200624, end: 20200701
  3. XELODA [Suspect]
     Active Substance: CAPECITABINE
     Indication: METASTASES TO LIVER
     Route: 048
  4. SENOKOT [Concomitant]
     Active Substance: SENNOSIDES
     Dosage: 30 TABLET: TAKE 1 TABLET (8.6 MG) BY MOUTH DAILY FOR 30 DAYS
     Route: 048
     Dates: start: 20200622
  5. COLACE [Concomitant]
     Active Substance: DOCUSATE SODIUM
     Indication: CONSTIPATION
     Dosage: 30 CAPSULES
     Route: 048
  6. POLYETHYLENE GLYCOL [Concomitant]
     Active Substance: POLYETHYLENE GLYCOLS
     Route: 048
     Dates: start: 20200624

REACTIONS (1)
  - Cardiac disorder [Unknown]
